FAERS Safety Report 13660502 (Version 1)
Quarter: 2017Q2

REPORT INFORMATION
  Report Type: Spontaneous
  Country: US (occurrence: US)
  Receive Date: 20170615
  Receipt Date: 20170615
  Transmission Date: 20170830
  Serious: Yes (Life-Threatening, Disabling)
  Sender: FDA-Public Use
  Company Number: None

PATIENT
  Age: 31 Year
  Sex: Female
  Weight: 191.2 kg

DRUGS (4)
  1. VITAMIN D [Concomitant]
     Active Substance: CHOLECALCIFEROL
  2. PSYCHOTROPIC MEDICATION [Suspect]
     Active Substance: UNSPECIFIED INGREDIENT
     Indication: MENTAL DISORDER
     Dosage: OTHER ROUTE:MOUTH + INJECTIONS?
     Dates: start: 20030101, end: 20170430
  3. WELLBUTRAIN XL [Concomitant]
  4. LEVOTHRYROXINE [Concomitant]

REACTIONS (6)
  - Emotional disorder [None]
  - Cyst [None]
  - Sleep apnoea syndrome [None]
  - Cognitive disorder [None]
  - Disturbance in attention [None]
  - Memory impairment [None]

NARRATIVE: CASE EVENT DATE: 20040101
